FAERS Safety Report 8438903-3 (Version None)
Quarter: 2012Q2

REPORT INFORMATION
  Report Type: 
  Country: None (occurrence: None)
  Receive Date: 20120615
  Receipt Date: 20120605
  Transmission Date: 20120825
  Serious: Yes (Hospitalization)
  Sender: FDA-Public Use
  Company Number: JP-JNJFOC-20120520095

PATIENT
  Age: 70 Year
  Sex: Female

DRUGS (4)
  1. REMICADE [Suspect]
     Route: 042
  2. METHOTREXATE [Suspect]
     Indication: PRODUCT USED FOR UNKNOWN INDICATION
     Route: 048
  3. REMICADE [Suspect]
     Indication: RHEUMATOID ARTHRITIS
     Route: 042
     Dates: start: 20080901
  4. REMICADE [Suspect]
     Route: 042
     Dates: start: 20110101

REACTIONS (3)
  - PERIODONTITIS [None]
  - NEPHROTIC SYNDROME [None]
  - CHRONIC TONSILLITIS [None]
